FAERS Safety Report 16601963 (Version 1)
Quarter: 2019Q3

REPORT INFORMATION
  Report Type: Spontaneous
  Country: None (occurrence: US)
  Receive Date: 20190719
  Receipt Date: 20190719
  Transmission Date: 20191004
  Serious: No
  Sender: FDA-Public Use
  Company Number: US-TEIKOKU PHARMA USA-TPU2019-00546

PATIENT
  Sex: Male
  Weight: 81.72 kg

DRUGS (2)
  1. LIDOCAINE PATCH [Suspect]
     Active Substance: LIDOCAINE
     Indication: PATELLOFEMORAL PAIN SYNDROME
     Dosage: APPLIED PATCH TO THE RIGHT KNEE
     Dates: start: 20190713, end: 20190713
  2. MELOXICAM. [Concomitant]
     Active Substance: MELOXICAM
     Indication: PATELLOFEMORAL PAIN SYNDROME
     Dates: start: 20190618

REACTIONS (1)
  - Prescription drug used without a prescription [Unknown]

NARRATIVE: CASE EVENT DATE: 20190713
